FAERS Safety Report 9779995 (Version 1)
Quarter: 2013Q4

REPORT INFORMATION
  Report Type: Spontaneous
  Country: DK (occurrence: DK)
  Receive Date: 20131223
  Receipt Date: 20131223
  Transmission Date: 20140711
  Serious: Yes (Other)
  Sender: FDA-Public Use
  Company Number: DK-WATSON-2013-23468

PATIENT
  Sex: Female

DRUGS (1)
  1. SIMVASTATIN ACTAVIS [Suspect]
     Indication: PRODUCT USED FOR UNKNOWN INDICATION
     Dosage: UNK
     Route: 065
     Dates: start: 201208, end: 20130409

REACTIONS (12)
  - Gait disturbance [Recovered/Resolved]
  - Memory impairment [Recovered/Resolved]
  - Pain in extremity [Recovered/Resolved]
  - Abdominal discomfort [Recovered/Resolved]
  - Abnormal faeces [Recovered/Resolved]
  - Chromaturia [Recovered/Resolved]
  - Insomnia [Recovered/Resolved]
  - Myalgia [Recovered/Resolved]
  - Headache [Recovered/Resolved]
  - Dizziness [Recovered/Resolved]
  - Oedema peripheral [Recovered/Resolved]
  - Fatigue [Recovered/Resolved]
